FAERS Safety Report 8525679 (Version 6)
Quarter: 2013Q1

REPORT INFORMATION
  Report Type: Spontaneous
  Country: US (occurrence: US)
  Receive Date: 20120423
  Receipt Date: 20130221
  Transmission Date: 20140127
  Serious: Yes (Hospitalization)
  Sender: FDA-Public Use
  Company Number: US-GLAXOSMITHKLINE-A0974396A

PATIENT
  Age: 47 Year
  Sex: Female

DRUGS (5)
  1. FLOLAN [Suspect]
     Indication: PRODUCT USED FOR UNKNOWN INDICATION
     Dosage: 48NGKM CONTINUOUS
     Route: 065
     Dates: start: 20010629
  2. TRACLEER [Concomitant]
     Dosage: 125MG TWICE PER DAY
     Route: 048
  3. LASIX [Concomitant]
     Route: 048
  4. BYSTOLIC [Concomitant]
     Route: 048
  5. REVATIO [Concomitant]
     Route: 048

REACTIONS (3)
  - Ascites [Recovering/Resolving]
  - Malaise [Unknown]
  - Disease progression [Unknown]
